FAERS Safety Report 5757073-3 (Version None)
Quarter: 2008Q2

REPORT INFORMATION
  Report Type: 
  Country: None (occurrence: None)
  Receive Date: 20080603
  Receipt Date: 20080523
  Transmission Date: 20081010
  Serious: Yes (Other)
  Sender: FDA-Public Use
  Company Number: B0522215A

PATIENT
  Age: 73 Year
  Sex: Male
  Weight: 51 kg

DRUGS (5)
  1. ULTIVA [Suspect]
     Dosage: 4MG PER DAY
     Route: 042
     Dates: start: 20080515, end: 20080515
  2. CEFAZOLIN SODIUM [Suspect]
     Indication: DRUG USE FOR UNKNOWN INDICATION
     Dosage: 1G PER DAY
     Route: 042
     Dates: start: 20080515, end: 20080515
  3. PROPOFOL [Concomitant]
     Dosage: 100MG PER DAY
     Route: 042
     Dates: start: 20080515, end: 20080515
  4. SEVOFLURANE [Concomitant]
     Dosage: 80ML PER DAY
     Route: 055
     Dates: start: 20080515, end: 20080515
  5. VECURONIUM BROMIDE [Concomitant]
     Indication: DRUG USE FOR UNKNOWN INDICATION
     Dosage: 8MG PER DAY
     Route: 042
     Dates: start: 20080515, end: 20080515

REACTIONS (6)
  - ALANINE AMINOTRANSFERASE INCREASED [None]
  - ASPARTATE AMINOTRANSFERASE INCREASED [None]
  - BLOOD CREATINE PHOSPHOKINASE INCREASED [None]
  - BLOOD LACTATE DEHYDROGENASE INCREASED [None]
  - LIVER DISORDER [None]
  - TRIGEMINAL NEURALGIA [None]
